FAERS Safety Report 21557313 (Version 3)
Quarter: 2023Q1

REPORT INFORMATION
  Report Type: Report from Study
  Country: BR (occurrence: BR)
  Receive Date: 20221105
  Receipt Date: 20230319
  Transmission Date: 20230418
  Serious: Yes (Life-Threatening, Other)
  Sender: FDA-Public Use
  Company Number: BR-002147023-NVSC2022BR210481

PATIENT
  Age: 74 Year
  Sex: Female
  Weight: 50 kg

DRUGS (7)
  1. PIQRAY [Suspect]
     Active Substance: ALPELISIB
     Indication: Product used for unknown indication
     Dosage: UNK
     Route: 065
     Dates: start: 20220726
  2. PIQRAY [Suspect]
     Active Substance: ALPELISIB
     Dosage: 150 MG (2 TABLETS PER DAY)
     Route: 065
     Dates: start: 20220802, end: 20220829
  3. PIQRAY [Suspect]
     Active Substance: ALPELISIB
     Dosage: 150 MG (2 TABLETS PER DAY)
     Route: 065
     Dates: start: 20220830, end: 20220918
  4. PIQRAY [Suspect]
     Active Substance: ALPELISIB
     Dosage: UNK (THIRD BOX)
     Route: 065
     Dates: start: 2022, end: 20220923
  5. PIQRAY [Suspect]
     Active Substance: ALPELISIB
     Dosage: UNK
     Route: 065
     Dates: start: 20220924, end: 20221001
  6. PANTOPRAZOLE [Suspect]
     Active Substance: PANTOPRAZOLE
     Indication: Product used for unknown indication
     Dosage: UNK
     Route: 065
  7. HYDROCORTISONE\MICONAZOLE NITRATE [Concomitant]
     Active Substance: HYDROCORTISONE\MICONAZOLE NITRATE
     Indication: Product used for unknown indication
     Dosage: UNK
     Route: 065

REACTIONS (21)
  - Open globe injury [Recovered/Resolved]
  - Wound [Recovered/Resolved]
  - Oral mucosal blistering [Recovered/Resolved]
  - Blood glucose increased [Recovered/Resolved]
  - Weight decreased [Recovering/Resolving]
  - Malaise [Recovering/Resolving]
  - Hordeolum [Recovering/Resolving]
  - Oral disorder [Recovering/Resolving]
  - Gingival abscess [Recovering/Resolving]
  - Lip disorder [Recovering/Resolving]
  - Dysphagia [Recovering/Resolving]
  - Skin mass [Recovered/Resolved]
  - Eating disorder [Recovering/Resolving]
  - Breast mass [Recovered/Resolved]
  - Limb mass [Recovered/Resolved]
  - Nipple swelling [Unknown]
  - Irritability [Unknown]
  - Hypersensitivity [Recovering/Resolving]
  - Product packaging quantity issue [Unknown]
  - Nausea [Not Recovered/Not Resolved]
  - Somnolence [Recovering/Resolving]

NARRATIVE: CASE EVENT DATE: 20220801
